FAERS Safety Report 15808459 (Version 1)
Quarter: 2019Q1

REPORT INFORMATION
  Report Type: Spontaneous
  Country: US (occurrence: US)
  Receive Date: 20190110
  Receipt Date: 20190110
  Transmission Date: 20190417
  Serious: Yes (Hospitalization)
  Sender: FDA-Public Use
  Company Number: US-TEVA-2019-US-994598

PATIENT
  Age: 58 Year
  Sex: Male

DRUGS (3)
  1. CISPLATIN. [Suspect]
     Active Substance: CISPLATIN
     Indication: GASTROINTESTINAL CARCINOMA
     Dosage: RECEIVED ONE CYCLE OF CHEMOTHERAPY
     Route: 065
  2. GEMCITABINE [Suspect]
     Active Substance: GEMCITABINE\GEMCITABINE HYDROCHLORIDE
     Indication: GASTROINTESTINAL CARCINOMA
     Dosage: RECEIVED ONE CYCLE OF CHEMOTHERAPY
     Route: 065
  3. TRAMETINIB [Suspect]
     Active Substance: TRAMETINIB
     Indication: GASTROINTESTINAL CARCINOMA
     Dosage: 2 MILLIGRAM DAILY;
     Route: 048

REACTIONS (3)
  - Decreased appetite [Unknown]
  - Lethargy [Unknown]
  - Asthenia [Unknown]
